FAERS Safety Report 19222141 (Version 2)
Quarter: 2021Q2

REPORT INFORMATION
  Report Type: Spontaneous
  Country: US (occurrence: US)
  Receive Date: 20210505
  Receipt Date: 20210518
  Transmission Date: 20210717
  Serious: No
  Sender: FDA-Public Use
  Company Number: US-SA-2021SA146583

PATIENT
  Age: 59 Year
  Sex: Female

DRUGS (1)
  1. DUPIXENT [Suspect]
     Active Substance: DUPILUMAB
     Indication: CHRONIC RHINOSINUSITIS WITH NASAL POLYPS
     Dosage: UNK
     Route: 058
     Dates: start: 20210407

REACTIONS (5)
  - Paraesthesia oral [Unknown]
  - Anosmia [Not Recovered/Not Resolved]
  - Dyspepsia [Not Recovered/Not Resolved]
  - Swelling of eyelid [Unknown]
  - Visual impairment [Unknown]

NARRATIVE: CASE EVENT DATE: 20210407
